FAERS Safety Report 6592630-6 (Version None)
Quarter: 2010Q1

REPORT INFORMATION
  Report Type: 
  Country: None (occurrence: None)
  Receive Date: 20100222
  Receipt Date: 20100208
  Transmission Date: 20100710
  Serious: Yes (Other)
  Sender: FDA-Public Use
  Company Number: FR-RANBAXY-2010RR-31057

PATIENT
  Age: 62 Year
  Sex: Female

DRUGS (14)
  1. NEVIRAPINE [Suspect]
     Indication: HIV INFECTION
     Dosage: 400 MG, UNK
  2. LAMIVUDINE [Suspect]
     Indication: HIV INFECTION
  3. ZIDOVUDINE [Suspect]
     Indication: HIV INFECTION
  4. ENOXAPARIN SODIUM [Suspect]
  5. FLUINDIONE [Suspect]
     Dosage: 40 MG, UNK
  6. WARFARIN SODIUM [Suspect]
     Dosage: 6 MG, UNK
  7. OMEPRAZOLE [Concomitant]
  8. GABAPENTIN [Concomitant]
  9. RILMENIDINE [Concomitant]
  10. NICARDIPINE HYDROCHLORIDE [Concomitant]
  11. PERINDOPRIL [Concomitant]
  12. ATENOLOL [Concomitant]
  13. ALPRAZOLAM [Concomitant]
  14. TINZAPARIN SODIUM [Concomitant]

REACTIONS (4)
  - DEEP VEIN THROMBOSIS [None]
  - DRUG INEFFECTIVE [None]
  - DRUG INTERACTION [None]
  - DRUG LEVEL DECREASED [None]
